FAERS Safety Report 7323506-4 (Version None)
Quarter: 2011Q1

REPORT INFORMATION
  Report Type: 
  Country: None (occurrence: None)
  Receive Date: 20110301
  Receipt Date: 20110216
  Transmission Date: 20110831
  Serious: Yes (Hospitalization)
  Sender: FDA-Public Use
  Company Number: PHHY2011IL13048

PATIENT
  Sex: Female

DRUGS (2)
  1. RASILEZ [Suspect]
     Dosage: 300 MG DAILY
     Route: 048
  2. DIOVAN [Suspect]
     Dosage: 240 MG DAILY
     Route: 048

REACTIONS (3)
  - BLOOD CREATININE INCREASED [None]
  - RENAL FAILURE [None]
  - PROTEINURIA [None]
